FAERS Safety Report 15661971 (Version 5)
Quarter: 2019Q4

REPORT INFORMATION
  Report Type: Spontaneous
  Country: JP (occurrence: JP)
  Receive Date: 20181127
  Receipt Date: 20191008
  Transmission Date: 20200122
  Serious: Yes (Hospitalization, Other)
  Sender: FDA-Public Use
  Company Number: JP-009507513-1811JPN002101J

PATIENT
  Age: 66 Year
  Sex: Male

DRUGS (1)
  1. KEYTRUDA [Suspect]
     Active Substance: PEMBROLIZUMAB
     Indication: NON-SMALL CELL LUNG CANCER
     Dosage: 200 MILLIGRAM, Q3W
     Route: 041
     Dates: start: 20180612, end: 2018

REACTIONS (4)
  - Interstitial lung disease [Recovered/Resolved]
  - Thyroid disorder [Recovered/Resolved]
  - Rash [Recovering/Resolving]
  - Liver disorder [Recovered/Resolved]

NARRATIVE: CASE EVENT DATE: 201808
